FAERS Safety Report 5852723-5 (Version None)
Quarter: 2008Q3

REPORT INFORMATION
  Report Type: 
  Country: None (occurrence: None)
  Receive Date: 20080819
  Receipt Date: 20080808
  Transmission Date: 20090109
  Serious: Yes (Death, Life-Threatening)
  Sender: FDA-Public Use
  Company Number: 000667

PATIENT
  Age: 32 Year
  Sex: Female

DRUGS (11)
  1. BUSULFEX [Suspect]
     Indication: STEM CELL TRANSPLANT
     Dosage: 19.2 ML, DAILY DOSE INTRAVENOUS
     Route: 042
     Dates: start: 20070526, end: 20070526
  2. BUSULFEX [Suspect]
     Dosage: 25.6 ML, DAILY DOSE; INTRAVENOUS
     Route: 042
     Dates: start: 20070527, end: 20070527
  3. BUSULFEX [Suspect]
     Dosage: 6.4 ML, DAILY DOSE; INTRAVENOUS
     Route: 042
     Dates: start: 20070528, end: 20070528
  4. NARTOGRASTIM (NARTOGRASTIM) [Concomitant]
  5. TACROLIMUS [Concomitant]
  6. METHYLPREDNISOLONE [Concomitant]
  7. MYCOPHENOLATE MOFETIL [Concomitant]
  8. ANTILYMPHOCYTE IMMUNOGLOBULIN (HORSE) (ANTILYMPHOCYTE IMMUNOGLOBULIN ( [Concomitant]
  9. MELPHALAN (MELPHALAN ) [Concomitant]
  10. FLUDARABINE PHOSPHATE [Concomitant]
  11. VALPROATE SODIUM [Concomitant]

REACTIONS (15)
  - ACUTE GRAFT VERSUS HOST DISEASE [None]
  - ALTERED STATE OF CONSCIOUSNESS [None]
  - ANOREXIA [None]
  - BLISTER [None]
  - BLOOD BILIRUBIN INCREASED [None]
  - BONE MARROW TRANSPLANT [None]
  - BONE MARROW TRANSPLANT REJECTION [None]
  - BRAIN ABSCESS [None]
  - CYTOMEGALOVIRUS VIRAEMIA [None]
  - DIARRHOEA [None]
  - GENERAL PHYSICAL HEALTH DETERIORATION [None]
  - MALAISE [None]
  - NAUSEA [None]
  - STOMATITIS [None]
  - VOMITING [None]
